FAERS Safety Report 15508803 (Version 1)
Quarter: 2018Q4

REPORT INFORMATION
  Report Type: Spontaneous
  Country: US (occurrence: US)
  Receive Date: 20181016
  Receipt Date: 20181016
  Transmission Date: 20190205
  Serious: No
  Sender: FDA-Public Use
  Company Number: US-AMGEN-USASP2018097433

PATIENT
  Age: 54 Year
  Sex: Female

DRUGS (3)
  1. CARTEOLOL [Concomitant]
     Active Substance: CARTEOLOL
     Dosage: 12.5 MG, BID
  2. AMLODIPINE [Concomitant]
     Active Substance: AMLODIPINE BESYLATE
  3. SENSIPAR [Suspect]
     Active Substance: CINACALCET HYDROCHLORIDE
     Indication: HYPERPARATHYROIDISM
     Dosage: UNK
     Route: 065

REACTIONS (1)
  - Blood parathyroid hormone increased [Unknown]

NARRATIVE: CASE EVENT DATE: 2018
